FAERS Safety Report 12580281 (Version 1)
Quarter: 2016Q3

REPORT INFORMATION
  Report Type: Spontaneous
  Country: US (occurrence: US)
  Receive Date: 20160721
  Receipt Date: 20160721
  Transmission Date: 20161109
  Serious: Yes (Hospitalization)
  Sender: FDA-Public Use
  Company Number: US-AMGEN-2013-1542

PATIENT
  Age: 48 Year
  Sex: Female

DRUGS (1)
  1. KYPROLIS [Suspect]
     Active Substance: CARFILZOMIB
     Indication: PLASMA CELL MYELOMA
     Dosage: 200 MG, UNK
     Route: 042
     Dates: start: 20130916, end: 20130916

REACTIONS (6)
  - Medication error [Recovering/Resolving]
  - Hypotension [Recovered/Resolved]
  - Renal failure [Recovered/Resolved]
  - Chills [Unknown]
  - Lymphopenia [Recovering/Resolving]
  - Platelet count decreased [Recovered/Resolved]

NARRATIVE: CASE EVENT DATE: 201309
